FAERS Safety Report 6210358-9 (Version None)
Quarter: 2009Q2

REPORT INFORMATION
  Report Type: 
  Country: None (occurrence: None)
  Receive Date: 20090529
  Receipt Date: 20090529
  Transmission Date: 20091009
  Serious: Yes (Life-Threatening)
  Sender: FDA-Public Use
  Company Number: None

PATIENT
  Age: 55 Year
  Sex: Male
  Weight: 158.759 kg

DRUGS (2)
  1. LISINOPRIL [Suspect]
     Indication: CARDIAC HYPERTROPHY
     Dosage: 20MG ONCE A DAY PO
     Route: 048
     Dates: start: 20090101, end: 20090527
  2. LISINOPRIL [Suspect]
     Indication: HYPERTENSION
     Dosage: 20MG ONCE A DAY PO
     Route: 048
     Dates: start: 20090101, end: 20090527

REACTIONS (2)
  - ANAPHYLACTIC REACTION [None]
  - NO REACTION ON PREVIOUS EXPOSURE TO DRUG [None]
